FAERS Safety Report 15837129 (Version 1)
Quarter: 2019Q1

REPORT INFORMATION
  Report Type: Spontaneous
  Country: SK (occurrence: SK)
  Receive Date: 20190117
  Receipt Date: 20190117
  Transmission Date: 20190417
  Serious: Yes (Other)
  Sender: FDA-Public Use
  Company Number: SK-ABBVIE-19K-260-2629370-00

PATIENT
  Age: 35 Year
  Sex: Male
  Weight: 141 kg

DRUGS (1)
  1. HUMIRA [Suspect]
     Active Substance: ADALIMUMAB
     Indication: HIDRADENITIS
     Route: 058
     Dates: start: 20161122, end: 20190108

REACTIONS (1)
  - Seroconversion test positive [Recovered/Resolved]

NARRATIVE: CASE EVENT DATE: 20180206
